FAERS Safety Report 8679722 (Version 3)
Quarter: 2013Q1

REPORT INFORMATION
  Report Type: Spontaneous
  Country: BR (occurrence: BR)
  Receive Date: 20120724
  Receipt Date: 20130219
  Transmission Date: 20140127
  Serious: Yes (Other)
  Sender: FDA-Public Use
  Company Number: PHHY2012BR062797

PATIENT
  Age: 29 Year
  Sex: Female

DRUGS (7)
  1. RITALINA [Suspect]
     Indication: DISTURBANCE IN ATTENTION
     Dosage: 10 MG, BID
     Route: 048
  2. RITALINA [Suspect]
     Dosage: 10 MG, BID
     Route: 048
     Dates: end: 2012
  3. RITALIN LA [Suspect]
     Indication: DISTURBANCE IN ATTENTION
     Dosage: 10 MG, QD
     Route: 048
  4. RITALIN LA [Suspect]
     Dosage: 20 MG, QD
     Route: 048
  5. TRAMADOL [Concomitant]
     Indication: PAIN
     Dosage: UNK UKN, UNK
  6. TORADIAZIC [Concomitant]
     Indication: PAIN
     Dosage: 1 DF, OT, EVERY FOUR HOURS
  7. SERETIDE [Concomitant]
     Indication: ASTHMA
     Dosage: 1 DF, BID (1 ASPIRATION IN THE MORNING AND 1 AT NIGHT )

REACTIONS (6)
  - Laziness [Recovered/Resolved]
  - Somnolence [Recovered/Resolved]
  - Wrong technique in drug usage process [Unknown]
  - Pain [Unknown]
  - Depressed mood [Unknown]
  - Drug ineffective [Recovered/Resolved]
